FAERS Safety Report 13340028 (Version 3)
Quarter: 2017Q2

REPORT INFORMATION
  Report Type: Spontaneous
  Country: IT (occurrence: IT)
  Receive Date: 20170316
  Receipt Date: 20170410
  Transmission Date: 20170830
  Serious: Yes (Other)
  Sender: FDA-Public Use
  Company Number: IT-ROCHE-1902755

PATIENT
  Age: 54 Year
  Sex: Female

DRUGS (2)
  1. ZELBORAF [Suspect]
     Active Substance: VEMURAFENIB
     Indication: METASTATIC MALIGNANT MELANOMA
     Dosage: 240 MG BLISTER PACK (AL/AL) 56 TABLETS (L01XE15)
     Route: 048
     Dates: start: 20170220, end: 20170303
  2. COTELLIC [Suspect]
     Active Substance: COBIMETINIB
     Indication: METASTATIC MALIGNANT MELANOMA
     Dosage: 20 MG PVC/PVDC BLISTER PACK - 63 (3X21) TABLETS (L01XE38)
     Route: 048
     Dates: start: 20170220, end: 20170303

REACTIONS (1)
  - Stevens-Johnson syndrome [Recovering/Resolving]

NARRATIVE: CASE EVENT DATE: 20170304
